FAERS Safety Report 6620278-3 (Version None)
Quarter: 2010Q1

REPORT INFORMATION
  Report Type: 
  Country: None (occurrence: None)
  Receive Date: 20100308
  Receipt Date: 20100308
  Transmission Date: 20100710
  Serious: Yes (Death)
  Sender: FDA-Public Use
  Company Number: None

PATIENT
  Age: 81 Year
  Sex: Male
  Weight: 84.1 kg

DRUGS (15)
  1. RISPERIDONE [Suspect]
     Indication: BIPOLAR DISORDER
     Dosage: 1.5MG PO AT BEDTIME
     Route: 048
     Dates: start: 20061201
  2. RISPERIDONE [Suspect]
     Indication: DEMENTIA
     Dosage: 1.5MG PO AT BEDTIME
     Route: 048
     Dates: start: 20061201
  3. ASPIRIN [Concomitant]
  4. BENAZEPRIL HYDROCHLORIDE [Concomitant]
  5. CARVEDILOL [Concomitant]
  6. DOCUSATE NA [Concomitant]
  7. FUROSEMIDE [Concomitant]
  8. GALANTAMINE HYDROBROMIDE [Concomitant]
  9. GLIPIZIDE [Concomitant]
  10. METFORMIN HYDROCHLORIDE [Concomitant]
  11. MOMETASONE ORAL INHL [Concomitant]
  12. OMEPRAZOLE [Concomitant]
  13. SIMVASTATIN [Concomitant]
  14. SPIRONOLACTONE [Concomitant]
  15. ALBUTEROL [Concomitant]

REACTIONS (1)
  - DEATH [None]
